FAERS Safety Report 7476568-8 (Version None)
Quarter: 2011Q2

REPORT INFORMATION
  Report Type: 
  Country: None (occurrence: None)
  Receive Date: 20110512
  Receipt Date: 20110509
  Transmission Date: 20111010
  Serious: Yes (Other)
  Sender: FDA-Public Use
  Company Number: CHPA2010US11613

PATIENT
  Age: 26 Year
  Sex: Female
  Weight: 65.76 kg

DRUGS (1)
  1. LAMISIL AT CONTINUOUS SPRAY, ATHLETE'S FOOT [Suspect]
     Indication: TINEA PEDIS
     Dosage: UNK, QD
     Route: 061
     Dates: start: 20100716

REACTIONS (3)
  - ABORTION SPONTANEOUS [None]
  - UTERINE DILATION AND CURETTAGE [None]
  - DRUG EXPOSURE DURING PREGNANCY [None]
